FAERS Safety Report 4849562-0 (Version None)
Quarter: 2005Q4

REPORT INFORMATION
  Report Type: 
  Country: None (occurrence: None)
  Receive Date: 20051207
  Receipt Date: 20051128
  Transmission Date: 20060501
  Serious: Yes (Other)
  Sender: FDA-Public Use
  Company Number: 2005BI007222

PATIENT
  Age: 54 Year
  Sex: Female
  Weight: 49.4421 kg

DRUGS (4)
  1. AVONEX [Suspect]
     Indication: MULTIPLE SCLEROSIS
     Dosage: 30 UG; QW; IM
     Route: 030
     Dates: start: 20000301, end: 20030801
  2. AVONEX [Suspect]
     Indication: MULTIPLE SCLEROSIS
     Dosage: 30 UG; QW; IM
     Route: 030
     Dates: start: 20030801
  3. PREMARIN [Concomitant]
  4. ASCORBIC ACID [Concomitant]

REACTIONS (7)
  - BREAST CANCER STAGE I [None]
  - DIARRHOEA [None]
  - INCISION SITE COMPLICATION [None]
  - INFLUENZA LIKE ILLNESS [None]
  - NODULE [None]
  - OESTROGEN RECEPTOR ASSAY POSITIVE [None]
  - PROGESTERONE RECEPTOR ASSAY POSITIVE [None]
